FAERS Safety Report 5810671-0 (Version None)
Quarter: 2008Q3

REPORT INFORMATION
  Report Type: 
  Country: None (occurrence: None)
  Receive Date: 20080715
  Receipt Date: 20071129
  Transmission Date: 20090109
  Serious: No
  Sender: FDA-Public Use
  Company Number: US-BOEHRINGER INGELHEIM GMBH, GERMANY-2006-BP-14574BP

PATIENT
  Sex: Male
  Weight: 90 kg

DRUGS (12)
  1. MIRAPEX [Suspect]
     Indication: PARKINSON'S DISEASE
     Dosage: BETWEEN 0.5 MG THREE TIMES A DAY TO 2.25 MG THREE TIMES A DAY
     Dates: start: 19970728, end: 20051001
  2. STALEVO 100 [Concomitant]
     Indication: PARKINSON'S DISEASE
  3. ELDEPRYL [Concomitant]
     Indication: PARKINSON'S DISEASE
     Dates: start: 19960201
  4. SINEMET CR [Concomitant]
     Indication: PARKINSON'S DISEASE
     Dates: start: 20020101
  5. SINEMET [Concomitant]
     Indication: PARKINSON'S DISEASE
     Dosage: 25/100 TID
     Dates: start: 19970201
  6. PROPANLOL [Concomitant]
  7. NAPROSYN [Concomitant]
     Indication: PAIN
  8. VITAMIN C, E AND B COMPLEX [Concomitant]
     Dates: start: 20020101
  9. CALCIUM CARBONATE [Concomitant]
     Dates: start: 20020101
  10. MAGNESIUM [Concomitant]
     Dates: start: 20020101
  11. BETACAROTENE [Concomitant]
     Dates: start: 20020101
  12. MELATONIN [Concomitant]
     Dosage: AS NEEDED
     Dates: start: 20020101

REACTIONS (8)
  - ANXIETY [None]
  - COMPULSIONS [None]
  - DEPRESSION [None]
  - DRUG INTOLERANCE [None]
  - HYPOMANIA [None]
  - LIBIDO INCREASED [None]
  - OBSESSIVE-COMPULSIVE DISORDER [None]
  - PATHOLOGICAL GAMBLING [None]
